FAERS Safety Report 16162620 (Version 2)
Quarter: 2020Q1

REPORT INFORMATION
  Report Type: Spontaneous
  Country: US (occurrence: US)
  Receive Date: 20190405
  Receipt Date: 20200306
  Transmission Date: 20200409
  Serious: Yes (Hospitalization)
  Sender: FDA-Public Use
  Company Number: US-TORRENT-00007918

PATIENT
  Sex: Female
  Weight: 68 kg

DRUGS (1)
  1. LOSARTAN. [Suspect]
     Active Substance: LOSARTAN
     Indication: HYPERTENSION
     Dosage: ONCE PER DAY
     Dates: end: 201902

REACTIONS (6)
  - Renal impairment [Recovering/Resolving]
  - Dehydration [Recovering/Resolving]
  - Loss of consciousness [Recovering/Resolving]
  - Malaise [Recovering/Resolving]
  - Hypotension [Recovering/Resolving]
  - Dysstasia [Recovering/Resolving]
